FAERS Safety Report 7707838-3 (Version None)
Quarter: 2011Q3

REPORT INFORMATION
  Report Type: 
  Country: None (occurrence: None)
  Receive Date: 20110824
  Receipt Date: 20110818
  Transmission Date: 20111222
  Serious: Yes (Other)
  Sender: FDA-Public Use
  Company Number: CN-ASTRAZENECA-2011SE48461

PATIENT
  Age: 29 Year
  Sex: Female

DRUGS (2)
  1. TETRACAINE POLYGYL STERILE OPHTHALMIC SOLUTION [Concomitant]
     Indication: LOCAL ANAESTHESIA
  2. LIDOCAINE [Suspect]
     Indication: ANAESTHESIA

REACTIONS (2)
  - MYDRIASIS [None]
  - PUPILLARY REFLEX IMPAIRED [None]
